FAERS Safety Report 13467936 (Version 6)
Quarter: 2017Q4

REPORT INFORMATION
  Report Type: Spontaneous
  Country: CA (occurrence: CA)
  Receive Date: 20170421
  Receipt Date: 20171128
  Transmission Date: 20180320
  Serious: Yes (Other)
  Sender: FDA-Public Use
  Company Number: CA-CELLTRION HEALTHCARE HUNGARY KFT-2017CA001836

PATIENT

DRUGS (4)
  1. INFLECTRA [Suspect]
     Active Substance: INFLIXIMAB-DYYB
     Dosage: 300 MG, THEN EVERY 5 WEEKS
     Route: 042
  2. INFLECTRA [Suspect]
     Active Substance: INFLIXIMAB-DYYB
     Dosage: 300 MG, CYCLIC (Q 0, 2, 6 WEEKS, THEN EVERY 6 WEEKS)
     Route: 042
     Dates: start: 2017
  3. PREDNISONE. [Concomitant]
     Active Substance: PREDNISONE
     Dosage: 40 MG, DAILY
     Route: 048
     Dates: start: 20161028
  4. INFLECTRA [Suspect]
     Active Substance: INFLIXIMAB-DYYB
     Indication: COLITIS ULCERATIVE
     Dosage: 300 MG, CYCLIC (EVERY 2, 6 WEEKS, THEN EVERY 8 WEEKS FOR 12 MONTHS)
     Route: 042
     Dates: start: 20170121, end: 2017

REACTIONS (12)
  - Abdominal pain upper [Not Recovered/Not Resolved]
  - Malaise [Recovering/Resolving]
  - Off label use [Unknown]
  - Abdominal distension [Not Recovered/Not Resolved]
  - Haemorrhage [Not Recovered/Not Resolved]
  - Drug ineffective [Unknown]
  - Headache [Recovering/Resolving]
  - Defaecation urgency [Not Recovered/Not Resolved]
  - Dizziness [Not Recovered/Not Resolved]
  - Nausea [Not Recovered/Not Resolved]
  - Haematochezia [Unknown]
  - Frequent bowel movements [Unknown]

NARRATIVE: CASE EVENT DATE: 20170121
